FAERS Safety Report 20226792 (Version 4)
Quarter: 2022Q2

REPORT INFORMATION
  Report Type: Other
  Country: FR (occurrence: FR)
  Receive Date: 20211224
  Receipt Date: 20220413
  Transmission Date: 20220720
  Serious: Yes (Other)
  Sender: FDA-Public Use
  Company Number: FR-THERATECHNOLOGIES INC.-2021-THE-IBA-000314

PATIENT
  Age: 35 Year
  Sex: Male

DRUGS (11)
  1. IBALIZUMAB [Suspect]
     Active Substance: IBALIZUMAB
     Indication: HIV infection
     Dosage: 2000 MG, LOADING DOSE
     Route: 042
     Dates: start: 20211110
  2. IBALIZUMAB [Suspect]
     Active Substance: IBALIZUMAB
     Dosage: 800 MG, MAINTENANCE DOSE
     Route: 042
     Dates: start: 20211124, end: 20220104
  3. BICTEGRAVIR\EMTRICITABINE\TENOFOVIR ALAFENAMIDE [Suspect]
     Active Substance: BICTEGRAVIR\EMTRICITABINE\TENOFOVIR ALAFENAMIDE
     Indication: HIV-2 infection
     Dosage: UNK
     Route: 048
     Dates: start: 20190305, end: 20210113
  4. BICTEGRAVIR\EMTRICITABINE\TENOFOVIR ALAFENAMIDE [Suspect]
     Active Substance: BICTEGRAVIR\EMTRICITABINE\TENOFOVIR ALAFENAMIDE
     Dosage: UNK
     Route: 048
     Dates: start: 20210126
  5. DARUNAVIR\RITONAVIR [Suspect]
     Active Substance: DARUNAVIR\RITONAVIR
     Indication: HIV infection
     Dosage: 1 DOSAGE FORM, QD
     Route: 065
  6. FOSCAVIR [Suspect]
     Active Substance: FOSCARNET SODIUM
     Indication: HIV infection
     Dosage: UNK
     Route: 065
     Dates: start: 20211110, end: 20211124
  7. DOLUTEGRAVIR [Suspect]
     Active Substance: DOLUTEGRAVIR
     Indication: HIV infection
     Dosage: 50 MG, QD
     Route: 065
  8. PENTAMIDINE [Concomitant]
     Active Substance: PENTAMIDINE
     Indication: Product used for unknown indication
  9. BILAN [Concomitant]
     Indication: Product used for unknown indication
  10. LEUCOVORIN CALCIUM [Concomitant]
     Active Substance: LEUCOVORIN CALCIUM
     Indication: Product used for unknown indication
     Dosage: 25 MG, WEEKLY
  11. CHOLECALCIFEROL [Concomitant]
     Active Substance: CHOLECALCIFEROL
     Indication: Product used for unknown indication

REACTIONS (4)
  - Virologic failure [Recovering/Resolving]
  - Blood HIV RNA [Recovered/Resolved]
  - Genotype drug resistance test positive [Unknown]
  - Off label use [Not Recovered/Not Resolved]

NARRATIVE: CASE EVENT DATE: 20211105
